FAERS Safety Report 21564314 (Version 6)
Quarter: 2023Q1

REPORT INFORMATION
  Report Type: Report from Study
  Country: CN (occurrence: CN)
  Receive Date: 20221108
  Receipt Date: 20230210
  Transmission Date: 20230417
  Serious: Yes (Hospitalization, Other)
  Sender: FDA-Public Use
  Company Number: CN-TAKEDA-2022TUS081848

PATIENT
  Age: 41 Year
  Sex: Male
  Weight: 58 kg

DRUGS (33)
  1. VEDOLIZUMAB [Suspect]
     Active Substance: VEDOLIZUMAB
     Indication: Colitis ulcerative
     Dosage: 300 MILLIGRAM
     Route: 042
     Dates: start: 20221018
  2. MESALAMINE [Concomitant]
     Active Substance: MESALAMINE
     Indication: Inflammatory bowel disease
     Dosage: UNK
     Dates: start: 2016
  3. MESALAMINE [Concomitant]
     Active Substance: MESALAMINE
     Dosage: UNK
     Dates: start: 20221017
  4. Compound glutamine [Concomitant]
     Indication: Inflammatory bowel disease
     Dosage: UNK
     Route: 048
     Dates: start: 2016
  5. AMLODIPINE BESYLATE [Concomitant]
     Active Substance: AMLODIPINE BESYLATE
     Indication: Hypertension
     Dosage: 5 MILLIGRAM, QD
     Route: 048
     Dates: start: 2008
  6. CANDESARTAN [Concomitant]
     Active Substance: CANDESARTAN
     Indication: Hypertension
     Dosage: 4 MILLIGRAM, QD
     Route: 048
     Dates: start: 2008
  7. BACILLUS SUBTILIS [Concomitant]
     Active Substance: BACILLUS SUBTILIS
     Indication: Dysbiosis
     Dosage: 500 MILLIGRAM, TID
     Route: 048
     Dates: start: 20221017
  8. EBASTINE [Concomitant]
     Active Substance: EBASTINE
     Indication: Dermatitis allergic
     Dosage: 10 MILLIGRAM, QD
     Route: 048
     Dates: start: 20221018
  9. LEVOFLOXACIN SODIUM [Concomitant]
     Active Substance: LEVOFLOXACIN SODIUM
     Indication: Gastrointestinal infection
     Dosage: 0.5 GRAM, QD
     Route: 042
     Dates: start: 20221018
  10. TRIMEBUTINE MALEATE [Concomitant]
     Active Substance: TRIMEBUTINE MALEATE
     Dosage: 0.1 GRAM, QD
     Route: 048
     Dates: start: 20221102, end: 20221105
  11. PIPERACILLIN AND TAZOBACTAM [Concomitant]
     Active Substance: PIPERACILLIN SODIUM\TAZOBACTAM SODIUM
     Indication: Anti-infective therapy
     Dosage: 4.5 GRAM, Q12H
     Route: 041
     Dates: start: 20221104, end: 20221113
  12. BUDESONIDE [Concomitant]
     Active Substance: BUDESONIDE
     Indication: Antiinflammatory therapy
     Dosage: 1 MILLIGRAM, QD
     Route: 055
     Dates: start: 20221103, end: 20221107
  13. BUDESONIDE [Concomitant]
     Active Substance: BUDESONIDE
     Dosage: 1 MILLIGRAM, BID
     Route: 055
     Dates: start: 20221108, end: 20221112
  14. LANSOPRAZOLE [Concomitant]
     Active Substance: LANSOPRAZOLE
     Indication: Gastrooesophageal reflux disease
     Dosage: 30 MILLIGRAM, QD
     Route: 041
     Dates: start: 20221103, end: 20221103
  15. LANSOPRAZOLE [Concomitant]
     Active Substance: LANSOPRAZOLE
     Dosage: 30 MILLIGRAM, QD
     Route: 041
     Dates: start: 20230130, end: 20230202
  16. ALBUTEROL SULFATE [Concomitant]
     Active Substance: ALBUTEROL SULFATE
     Indication: Asthma
     Dosage: 2.5 MILLILITER, QD
     Route: 055
     Dates: start: 20221105, end: 20221109
  17. ALBUTEROL SULFATE [Concomitant]
     Active Substance: ALBUTEROL SULFATE
     Indication: Bronchospasm
     Dosage: 2.5 MILLILITER, BID
     Route: 055
     Dates: start: 20221110, end: 20221112
  18. COMPOUND CODEINE PHOSPHATE [Concomitant]
     Indication: Antitussive therapy
     Dosage: 10 MILLILITER, TID
     Route: 048
     Dates: start: 20221106, end: 20221114
  19. METOCLOPRAMIDE HYDROCHLORIDE [Concomitant]
     Active Substance: METOCLOPRAMIDE HYDROCHLORIDE
     Indication: Prophylaxis of nausea and vomiting
     Dosage: 10 MILLIGRAM, QD
     Route: 030
     Dates: start: 20221106, end: 20221106
  20. MONTELUKAST SODIUM [Concomitant]
     Active Substance: MONTELUKAST SODIUM
     Indication: Allergy prophylaxis
     Dosage: 0.1 GRAM, QD
     Route: 048
     Dates: start: 20221110, end: 20221114
  21. AMBROXOL HYDROCHLORIDE [Concomitant]
     Active Substance: AMBROXOL HYDROCHLORIDE
     Dosage: 30 MILLIGRAM, QD
     Route: 041
     Dates: start: 20221105, end: 20221105
  22. AMBROXOL HYDROCHLORIDE [Concomitant]
     Active Substance: AMBROXOL HYDROCHLORIDE
     Dosage: 45 MILLIGRAM, QD
     Route: 041
     Dates: start: 20221106, end: 20221113
  23. DIMETHICONE [Concomitant]
     Active Substance: DIMETHICONE
     Indication: Endoscopy upper gastrointestinal tract
     Dosage: 2 MILLILITER
     Route: 048
     Dates: start: 20221110, end: 20221110
  24. DIMETHICONE [Concomitant]
     Active Substance: DIMETHICONE
     Indication: Colonoscopy
     Dosage: 2 MILLILITER
     Route: 048
     Dates: start: 20230130, end: 20230130
  25. DYCLONINE HYDROCHLORIDE [Concomitant]
     Active Substance: DYCLONINE HYDROCHLORIDE
     Indication: Endoscopy upper gastrointestinal tract
     Dosage: 0.1 GRAM
     Route: 048
     Dates: start: 20221110, end: 20221110
  26. DYCLONINE HYDROCHLORIDE [Concomitant]
     Active Substance: DYCLONINE HYDROCHLORIDE
     Indication: Colonoscopy
     Dosage: 0.1 GRAM
     Route: 048
     Dates: start: 20230130, end: 20230130
  27. BENOXINATE HYDROCHLORIDE [Concomitant]
     Active Substance: BENOXINATE HYDROCHLORIDE
     Indication: Colonoscopy
     Dosage: 10 MILLILITER
     Route: 054
     Dates: start: 20230130, end: 20230130
  28. Polyethylene Glycol Electrolytes [Concomitant]
     Indication: Colonoscopy
     Dosage: 64 GRAM
     Route: 048
     Dates: start: 20230130, end: 20230130
  29. PREDNISONE ACETATE [Concomitant]
     Active Substance: PREDNISONE ACETATE
     Indication: Inflammatory bowel disease
     Dosage: 15 MILLIGRAM, QD
     Route: 048
     Dates: start: 20230130
  30. POTASSIUM CHLORIDE [Concomitant]
     Active Substance: POTASSIUM CHLORIDE
     Dosage: 10 MILLILITER, QD
     Route: 041
     Dates: start: 20230130, end: 20230202
  31. ESOMEPRAZOLE [Concomitant]
     Active Substance: ESOMEPRAZOLE
     Indication: Gastrointestinal disorder prophylaxis
     Dosage: 20 MILLIGRAM, QD
     Route: 048
     Dates: start: 20230201
  32. CALCIUM CARBONATE\CHOLECALCIFEROL [Concomitant]
     Active Substance: CALCIUM CARBONATE\CHOLECALCIFEROL
     Indication: Mineral supplementation
     Dosage: UNK UNK, QD
     Route: 048
     Dates: start: 20230201
  33. MESALAMINE [Concomitant]
     Active Substance: MESALAMINE
     Indication: Inflammatory bowel disease
     Dosage: UNK UNK, QD
     Route: 054
     Dates: start: 20221017

REACTIONS (8)
  - Eosinophilic oesophagitis [Recovered/Resolved]
  - Pulmonary tuberculosis [Not Recovered/Not Resolved]
  - Productive cough [Recovered/Resolved]
  - Serum ferritin decreased [Not Recovered/Not Resolved]
  - Intestinal polyp [Recovered/Resolved]
  - Gastrooesophageal reflux disease [Not Recovered/Not Resolved]
  - COVID-19 [Recovered/Resolved]
  - Hyperlipidaemia [Not Recovered/Not Resolved]

NARRATIVE: CASE EVENT DATE: 20221019
